FAERS Safety Report 24984011 (Version 1)
Quarter: 2025Q1

REPORT INFORMATION
  Report Type: Spontaneous
  Country: CN (occurrence: CN)
  Receive Date: 20250219
  Receipt Date: 20250219
  Transmission Date: 20250408
  Serious: Yes (Death, Other)
  Sender: RISING PHARMACEUTICALS
  Company Number: CN-RISINGPHARMA-CN-2025RISLIT00081

PATIENT
  Age: 47 Year
  Sex: Male
  Weight: 65 kg

DRUGS (1)
  1. ETOMIDATE [Suspect]
     Active Substance: ETOMIDATE
     Indication: Product used for unknown indication
     Route: 048

REACTIONS (10)
  - Pulmonary congestion [Fatal]
  - Loss of consciousness [Fatal]
  - Conjunctival hyperaemia [Fatal]
  - Cyanosis [Fatal]
  - Pallor [Fatal]
  - Drug level increased [Fatal]
  - Oedema [Fatal]
  - Tracheal disorder [Fatal]
  - Bronchial disorder [Fatal]
  - Toxicity to various agents [Fatal]
